FAERS Safety Report 23022270 (Version 2)
Quarter: 2023Q4

REPORT INFORMATION
  Report Type: Spontaneous
  Country: CN (occurrence: CN)
  Receive Date: 20231003
  Receipt Date: 20231006
  Transmission Date: 20240109
  Serious: Yes (Hospitalization, Other)
  Sender: FDA-Public Use
  Company Number: CN-009507513-2310CHN000547

PATIENT
  Age: 61 Year
  Sex: Male
  Weight: 57.5 kg

DRUGS (6)
  1. KEYTRUDA [Suspect]
     Active Substance: PEMBROLIZUMAB
     Indication: Lung neoplasm malignant
     Dosage: 200 MILLIGRAM, ONCE
     Route: 041
     Dates: start: 20230615, end: 20230615
  2. DOCETAXEL [Suspect]
     Active Substance: DOCETAXEL
     Indication: Targeted cancer therapy
     Dosage: 20 MILLIGRAM, ONCE
     Route: 041
     Dates: start: 20230615, end: 20230615
  3. DOCETAXEL [Suspect]
     Active Substance: DOCETAXEL
     Dosage: 80 MILLIGRAM, ONCE
     Route: 041
     Dates: start: 20230615, end: 20230615
  4. AVASTIN [Suspect]
     Active Substance: BEVACIZUMAB
     Indication: Targeted cancer therapy
     Dosage: 900 MILLIGRAM, ONCE
     Route: 041
     Dates: start: 20230615, end: 20230615
  5. SODIUM CHLORIDE [Concomitant]
     Active Substance: SODIUM CHLORIDE
     Indication: Medication dilution
     Dosage: 100 MILLILITER, ONCE
     Dates: start: 20230615, end: 20230615
  6. SODIUM CHLORIDE [Concomitant]
     Active Substance: SODIUM CHLORIDE
     Dosage: 500 MILLILITER, ONCE
     Dates: start: 20230615, end: 20230615

REACTIONS (3)
  - Myelosuppression [Recovering/Resolving]
  - Product use issue [Unknown]
  - Productive cough [Unknown]

NARRATIVE: CASE EVENT DATE: 20230615
